FAERS Safety Report 20378859 (Version 1)
Quarter: 2022Q1

REPORT INFORMATION
  Report Type: Spontaneous
  Country: US (occurrence: None)
  Receive Date: 20220126
  Receipt Date: 20220126
  Transmission Date: 20220423
  Serious: Yes (Hospitalization)
  Sender: FDA-Public Use
  Company Number: None

PATIENT
  Age: 78 Year
  Sex: Female
  Weight: 54.74 kg

DRUGS (1)
  1. TAXOL [Suspect]
     Active Substance: PACLITAXEL
     Dates: end: 20211223

REACTIONS (5)
  - Musculoskeletal stiffness [None]
  - Gait inability [None]
  - Dysstasia [None]
  - Urinary tract infection [None]
  - Asthenia [None]

NARRATIVE: CASE EVENT DATE: 20220121
